FAERS Safety Report 8322982-8 (Version None)
Quarter: 2012Q2

REPORT INFORMATION
  Report Type: 
  Country: None (occurrence: None)
  Receive Date: 20120430
  Receipt Date: 20120416
  Transmission Date: 20120825
  Serious: Yes (Hospitalization, Other)
  Sender: FDA-Public Use
  Company Number: US-MYLANLABS-2009AC000218

PATIENT
  Age: 54 Year
  Sex: Female
  Weight: 86.2 kg

DRUGS (38)
  1. NEPHRO [Concomitant]
  2. LANSOPRAZOLE [Concomitant]
  3. BETADINE /00080001/ [Concomitant]
  4. LEVAQUIN [Concomitant]
     Route: 048
  5. VITAMIN E [Concomitant]
     Route: 048
  6. HYDRALAZINE HCL [Concomitant]
     Route: 048
  7. DARBEPOETIN [Concomitant]
  8. OMNICEF /00497602/ [Concomitant]
  9. PEPCID [Concomitant]
     Route: 048
  10. LOPRESSOR [Concomitant]
     Route: 048
  11. GENTAMICIN [Concomitant]
  12. LISINOPRIL [Concomitant]
     Route: 048
  13. RENAGEL [Concomitant]
     Route: 048
  14. MIRALAX /00754501/ [Concomitant]
  15. CEFDINIR [Concomitant]
  16. DIFLUCAN [Concomitant]
     Route: 048
  17. PLAVIX [Concomitant]
     Route: 048
  18. ZOCOR [Concomitant]
     Route: 048
  19. NORVASC [Concomitant]
     Route: 048
  20. CLOPIDOGREL [Concomitant]
  21. POTASSIUM CHLORIDE [Concomitant]
  22. CLONIDINE [Concomitant]
     Route: 048
  23. VICODIN [Concomitant]
  24. VITAMIN C [Concomitant]
     Route: 048
  25. ZOSYN [Concomitant]
     Route: 042
  26. LASIX [Concomitant]
     Route: 048
  27. AUGMENTIN [Concomitant]
     Route: 048
  28. TYLENOL (CAPLET) [Concomitant]
     Route: 048
  29. DIGOXIN [Suspect]
     Route: 048
     Dates: start: 20090302, end: 20090822
  30. CALCITRIOL [Concomitant]
  31. ZEMPLAR [Concomitant]
  32. ASPIRIN [Concomitant]
     Route: 048
  33. METOPROLOL TARTRATE [Concomitant]
  34. ISOSORBIDE DINITRATE [Concomitant]
     Route: 048
  35. HUMULIN /00646003/ [Concomitant]
     Dosage: 70/30 45 UNITS IN THE MORNING AND 20 UNITS IN THE EVENING
  36. LANTUS [Concomitant]
     Route: 058
  37. PRAVACHOL [Concomitant]
  38. PRILOSEC [Concomitant]

REACTIONS (79)
  - CHEST PAIN [None]
  - BLOOD PRESSURE INCREASED [None]
  - SKIN DISCOLOURATION [None]
  - CARDIAC FAILURE CONGESTIVE [None]
  - LEFT VENTRICULAR HYPERTROPHY [None]
  - RENAL FAILURE ACUTE [None]
  - CONFUSIONAL STATE [None]
  - MUSCLE SPASMS [None]
  - PYREXIA [None]
  - GASTROINTESTINAL DISORDER [None]
  - ACUTE MYOCARDIAL INFARCTION [None]
  - ATRIOVENTRICULAR BLOCK FIRST DEGREE [None]
  - CELLULITIS [None]
  - DYSPEPSIA [None]
  - ECHOCARDIOGRAM ABNORMAL [None]
  - PERIPHERAL COLDNESS [None]
  - RALES [None]
  - TOE AMPUTATION [None]
  - ACCIDENTAL OVERDOSE [None]
  - CHEST DISCOMFORT [None]
  - TOXICITY TO VARIOUS AGENTS [None]
  - MALAISE [None]
  - PERITONEAL DIALYSIS [None]
  - RENAL IMPAIRMENT [None]
  - OSTEOMYELITIS [None]
  - CHEST X-RAY ABNORMAL [None]
  - DEBRIDEMENT [None]
  - DIZZINESS [None]
  - ANAEMIA [None]
  - ASTHENIA [None]
  - DEPRESSED LEVEL OF CONSCIOUSNESS [None]
  - MYOCARDIAL INFARCTION [None]
  - CORONARY ARTERY DISEASE [None]
  - DIARRHOEA [None]
  - LABORATORY TEST ABNORMAL [None]
  - TREATMENT NONCOMPLIANCE [None]
  - FATIGUE [None]
  - NAUSEA [None]
  - PAIN IN EXTREMITY [None]
  - TONIC CLONIC MOVEMENTS [None]
  - INFECTIOUS PERITONITIS [None]
  - CARDIOMYOPATHY [None]
  - ERYTHEMA [None]
  - MEMORY IMPAIRMENT [None]
  - NECK PAIN [None]
  - PERIPHERAL ISCHAEMIA [None]
  - LEUKOCYTOSIS [None]
  - FEELING OF BODY TEMPERATURE CHANGE [None]
  - CORONARY ARTERY OCCLUSION [None]
  - HYPERTENSIVE EMERGENCY [None]
  - DYSLIPIDAEMIA [None]
  - BACK PAIN [None]
  - COMPUTERISED TOMOGRAM ABNORMAL [None]
  - CONSTIPATION [None]
  - DIABETIC ULCER [None]
  - FALL [None]
  - GAIT DISTURBANCE [None]
  - GASTROOESOPHAGEAL REFLUX DISEASE [None]
  - HYPERTENSION [None]
  - OEDEMA PERIPHERAL [None]
  - FURUNCLE [None]
  - CARDIAC ENZYMES INCREASED [None]
  - RENAL FAILURE [None]
  - HYPERKALAEMIA [None]
  - HYPERGLYCAEMIA [None]
  - MENTAL STATUS CHANGES [None]
  - PERIPHERAL VASCULAR DISORDER [None]
  - ISCHAEMIA [None]
  - HYPOTENSION [None]
  - ABDOMINAL PAIN UPPER [None]
  - ANGINA PECTORIS [None]
  - PAIN [None]
  - CHILLS [None]
  - DIABETES MELLITUS INADEQUATE CONTROL [None]
  - PERICARDIAL EFFUSION [None]
  - RENAL FAILURE CHRONIC [None]
  - BRADYCARDIA [None]
  - CATHETERISATION CARDIAC ABNORMAL [None]
  - HEART RATE IRREGULAR [None]
